FAERS Safety Report 20016375 (Version 1)
Quarter: 2021Q4

REPORT INFORMATION
  Report Type: Spontaneous
  Country: US (occurrence: None)
  Receive Date: 20211103
  Receipt Date: 20211103
  Transmission Date: 20220303
  Serious: No
  Sender: FDA-Public Use
  Company Number: None

PATIENT
  Age: 60 Year
  Sex: Male

DRUGS (1)
  1. EPCLUSA [Suspect]
     Active Substance: SOFOSBUVIR\VELPATASVIR
     Dosage: OTHER QUANTITY : 400-100;?FREQUENCY : DAILY;?
     Route: 048
     Dates: start: 2016

REACTIONS (2)
  - Chest pain [None]
  - Anxiety [None]

NARRATIVE: CASE EVENT DATE: 20161101
